FAERS Safety Report 24274368 (Version 2)
Quarter: 2024Q3

REPORT INFORMATION
  Report Type: Spontaneous
  Country: RU (occurrence: None)
  Receive Date: 20240902
  Receipt Date: 20240917
  Transmission Date: 20241017
  Serious: Yes (Life-Threatening, Hospitalization, Other)
  Sender: ASTRAZENECA
  Company Number: 2024A198411

PATIENT
  Sex: Female

DRUGS (1)
  1. XIGDUO XR [Suspect]
     Active Substance: DAPAGLIFLOZIN PROPANEDIOL\METFORMIN HYDROCHLORIDE
     Indication: Type 2 diabetes mellitus
     Dosage: 5/1000, 1 TABLET PER DAY
     Route: 048

REACTIONS (8)
  - Ketoacidosis [Recovered/Resolved]
  - Condition aggravated [Unknown]
  - Blood electrolytes decreased [Unknown]
  - Hypotension [Not Recovered/Not Resolved]
  - Intentional product misuse [Unknown]
  - Ketonuria [Unknown]
  - Cardiac failure acute [Unknown]
  - Vomiting [Unknown]
